FAERS Safety Report 24546151 (Version 1)
Quarter: 2024Q4

REPORT INFORMATION
  Report Type: Spontaneous
  Country: JP (occurrence: JP)
  Receive Date: 20241024
  Receipt Date: 20241024
  Transmission Date: 20250115
  Serious: Yes (Life-Threatening)
  Sender: NX DEVELOPMENT CORPORATION
  Company Number: JP-sbiph-S000175510P

PATIENT
  Age: 63 Year
  Sex: Female
  Weight: 63.2 kg

DRUGS (5)
  1. AMINOLEVULINIC ACID HYDROCHLORIDE [Suspect]
     Active Substance: AMINOLEVULINIC ACID HYDROCHLORIDE
     Indication: Bladder transitional cell carcinoma
     Route: 048
     Dates: start: 20240202, end: 20240202
  2. ATORVASTATIN [Concomitant]
     Active Substance: ATORVASTATIN
  3. MARCAINE [Concomitant]
     Active Substance: BUPIVACAINE HYDROCHLORIDE
  4. PEMAFIBRATE [Concomitant]
     Active Substance: PEMAFIBRATE
  5. CARBAZOCHROME [Concomitant]
     Active Substance: CARBAZOCHROME

REACTIONS (2)
  - Hypotension [Recovered/Resolved]
  - Bradycardia [Recovered/Resolved]

NARRATIVE: CASE EVENT DATE: 20240202
